FAERS Safety Report 7731489-8 (Version None)
Quarter: 2011Q3

REPORT INFORMATION
  Report Type: 
  Country: None (occurrence: None)
  Receive Date: 20110906
  Receipt Date: 20110603
  Transmission Date: 20111222
  Serious: No
  Sender: FDA-Public Use
  Company Number: US-AMGEN-USASP2011028881

PATIENT
  Age: 60 Year
  Sex: Female

DRUGS (2)
  1. XGEVA [Suspect]
     Indication: METASTASES TO BONE
     Dates: start: 20110330
  2. FASLODEX                           /01285001/ [Concomitant]

REACTIONS (2)
  - WHITE BLOOD CELL COUNT DECREASED [None]
  - PYREXIA [None]
